APPROVED DRUG PRODUCT: TORSEMIDE
Active Ingredient: TORSEMIDE
Strength: 100MG
Dosage Form/Route: TABLET;ORAL
Application: A076894 | Product #004 | TE Code: AB
Applicant: COREPHARMA LLC
Approved: May 31, 2005 | RLD: No | RS: No | Type: RX